FAERS Safety Report 7297156-2 (Version None)
Quarter: 2011Q1

REPORT INFORMATION
  Report Type: 
  Country: None (occurrence: None)
  Receive Date: 20110216
  Receipt Date: 20110210
  Transmission Date: 20110831
  Serious: Yes (Hospitalization)
  Sender: FDA-Public Use
  Company Number: US-PFIZER INC-2010179680

PATIENT
  Sex: Female

DRUGS (1)
  1. NITROSTAT [Suspect]
     Indication: OESOPHAGEAL SPASM
     Dosage: 0.4 MG, AS NEEDED
     Route: 060

REACTIONS (2)
  - DRUG INEFFECTIVE FOR UNAPPROVED INDICATION [None]
  - OESOPHAGEAL SPASM [None]
